FAERS Safety Report 9318482 (Version 1)
Quarter: 2013Q2

REPORT INFORMATION
  Report Type: Spontaneous
  Country: US (occurrence: US)
  Receive Date: 20130530
  Receipt Date: 20130530
  Transmission Date: 20140414
  Serious: No
  Sender: FDA-Public Use
  Company Number: US-NOVEN-12US005573

PATIENT
  Age: 10 Year
  Sex: Female

DRUGS (1)
  1. DAYTRANA [Suspect]
     Indication: ATTENTION DEFICIT/HYPERACTIVITY DISORDER
     Dosage: 30 MG, QD HALF PATCH
     Route: 062
     Dates: start: 201207

REACTIONS (7)
  - Disturbance in social behaviour [Not Recovered/Not Resolved]
  - Anger [Not Recovered/Not Resolved]
  - Hostility [Not Recovered/Not Resolved]
  - Anxiety [None]
  - Agitation [Not Recovered/Not Resolved]
  - Drug ineffective [Not Recovered/Not Resolved]
  - Wrong technique in drug usage process [None]
